FAERS Safety Report 6208052-3 (Version None)
Quarter: 2009Q2

REPORT INFORMATION
  Report Type: 
  Country: None (occurrence: None)
  Receive Date: 20090529
  Receipt Date: 20090323
  Transmission Date: 20091009
  Serious: No
  Sender: FDA-Public Use
  Company Number: US-KINGPHARMUSA00001-K200900325

PATIENT
  Sex: Male
  Weight: 79.365 kg

DRUGS (3)
  1. FLECTOR [Suspect]
     Indication: TENDON PAIN
     Dosage: 1/2 PATCH, Q12 HOURS
     Route: 061
     Dates: start: 20090201
  2. FLECTOR [Suspect]
     Indication: TENDONITIS
  3. IBUPROFEN [Concomitant]
     Indication: TENDON PAIN
     Dosage: UNK, PRN
     Route: 048

REACTIONS (1)
  - DRUG INEFFECTIVE [None]
